FAERS Safety Report 7469166-3 (Version None)
Quarter: 2011Q2

REPORT INFORMATION
  Report Type: 
  Country: None (occurrence: None)
  Receive Date: 20110510
  Receipt Date: 20110502
  Transmission Date: 20111010
  Serious: Yes (Hospitalization)
  Sender: FDA-Public Use
  Company Number: IL-BAYER-2011-038460

PATIENT
  Age: 51 Year
  Sex: Male
  Weight: 98 kg

DRUGS (8)
  1. CLOPIDOGREL [Interacting]
     Indication: ACUTE CORONARY SYNDROME
     Dates: end: 20101020
  2. ATORVASTATIN [Concomitant]
  3. RIVAROXABAN [Interacting]
     Indication: ACUTE CORONARY SYNDROME
     Dosage: TABLET
     Route: 048
     Dates: start: 20101024, end: 20110430
  4. RAMIPRIL [Concomitant]
  5. ACETYLSALICYLIC ACID SRT [Suspect]
     Indication: ACUTE CORONARY SYNDROME
     Dates: end: 20101020
  6. ACETYLSALICYLIC ACID SRT [Interacting]
     Dates: end: 20110412
  7. CLOPIDOGREL [Interacting]
  8. PRILOSEC [Concomitant]

REACTIONS (2)
  - DYSPHONIA [None]
  - HAEMOPTYSIS [None]
